FAERS Safety Report 10207460 (Version 1)
Quarter: 2014Q2

REPORT INFORMATION
  Report Type: Spontaneous
  Country: US (occurrence: US)
  Receive Date: 20140530
  Receipt Date: 20140530
  Transmission Date: 20141212
  Serious: No
  Sender: FDA-Public Use
  Company Number: US-GLAXOSMITHKLINE-A1044359A

PATIENT
  Age: 1 Year
  Sex: Male

DRUGS (2)
  1. VENTOLIN [Suspect]
     Indication: WHEEZING
     Dosage: 1PUFF VARIABLE DOSE
     Route: 055
     Dates: start: 2012
  2. TOPICAL STEROID [Concomitant]

REACTIONS (1)
  - Drug administered to patient of inappropriate age [Unknown]
